FAERS Safety Report 6936220-1 (Version None)
Quarter: 2010Q3

REPORT INFORMATION
  Report Type: 
  Country: None (occurrence: None)
  Receive Date: 20100823
  Receipt Date: 20100811
  Transmission Date: 20110219
  Serious: Yes (Death, Hospitalization, Other)
  Sender: FDA-Public Use
  Company Number: US-PFIZER INC-2005135741

PATIENT
  Sex: Male
  Weight: 77.1 kg

DRUGS (17)
  1. ALPRAZOLAM [Suspect]
     Indication: ANXIETY
     Route: 048
     Dates: end: 20050201
  2. ANGIOMAX [Suspect]
     Indication: ILL-DEFINED DISORDER
     Dosage: 3.2ML BOLUS THEN 4 ML/HR TO 28 ML/HR
     Route: 042
     Dates: start: 20040720, end: 20040720
  3. DOLOPHINE HYDROCHLORIDE [Suspect]
     Indication: ALCOHOL WITHDRAWAL SYNDROME
     Dosage: UNK
     Route: 048
     Dates: end: 20050201
  4. ONDANSETRON [Suspect]
     Indication: NAUSEA
     Dosage: UNK
     Route: 048
     Dates: end: 20050201
  5. ACCUPRIL [Concomitant]
  6. CARDIZEM [Concomitant]
  7. WARFARIN [Concomitant]
  8. HYDROXYZINE [Concomitant]
  9. REGLAN [Concomitant]
  10. INSULIN [Concomitant]
  11. PANCRELIPASE [Concomitant]
  12. QUININE [Concomitant]
  13. REMERON [Concomitant]
  14. SYNTHROID [Concomitant]
  15. PENTOXYPHYLLINE [Concomitant]
  16. TERAZOSIN [Concomitant]
  17. ZOCOR [Concomitant]

REACTIONS (8)
  - ALCOHOL ABUSE [None]
  - CARDIO-RESPIRATORY ARREST [None]
  - CHEST PAIN [None]
  - CORONARY ARTERY STENOSIS [None]
  - HYPOXIC-ISCHAEMIC ENCEPHALOPATHY [None]
  - NAUSEA [None]
  - PAIN [None]
  - SYNCOPE [None]
